FAERS Safety Report 4631652-9 (Version None)
Quarter: 2005Q2

REPORT INFORMATION
  Report Type: 
  Country: None (occurrence: None)
  Receive Date: 20050407
  Receipt Date: 20050325
  Transmission Date: 20051028
  Serious: Yes (Hospitalization, Other)
  Sender: FDA-Public Use
  Company Number: 2005-00497

PATIENT
  Age: 65 Year
  Sex: Female

DRUGS (5)
  1. VELCADE [Suspect]
     Indication: MULTIPLE MYELOMA
     Dosage: 2.30 MG, 2/WEEK, IV BOLUS
     Route: 040
     Dates: start: 20050117, end: 20050307
  2. ALLOPURINOL [Concomitant]
  3. UNIPRIL (RAMIPRIL) [Concomitant]
  4. NEORECORMON (EPOETIN BETA) [Concomitant]
  5. ZOFRAN [Concomitant]

REACTIONS (2)
  - CARDIAC DISORDER [None]
  - RHABDOMYOLYSIS [None]
